FAERS Safety Report 4367778-7 (Version None)
Quarter: 2004Q2

REPORT INFORMATION
  Report Type: 
  Country: None (occurrence: None)
  Receive Date: 20040601
  Receipt Date: 20040525
  Transmission Date: 20050107
  Serious: Yes (Hospitalization)
  Sender: FDA-Public Use
  Company Number: GB-MERCK-0405GBR00192

PATIENT
  Age: 59 Year
  Sex: Male

DRUGS (15)
  1. AMLODIPINE BESYLATE [Concomitant]
     Route: 065
  2. ASPIRIN [Concomitant]
     Route: 065
  3. ATENOLOL [Concomitant]
     Route: 065
  4. CYCLOSPORINE [Concomitant]
     Route: 065
  5. DARBEPOETIN ALFA [Concomitant]
     Route: 058
  6. DOXAZOSIN MESYLATE [Concomitant]
     Route: 065
  7. GANCICLOVIR [Concomitant]
     Route: 065
  8. INSULIN, BIPHASIC ISOPHANE [INJECTION] [Concomitant]
     Route: 065
  9. INSULIN, BIPHASIC ISOPHANE [INJECTION] [Concomitant]
     Route: 065
  10. LACTULOSE [Concomitant]
     Route: 065
  11. MYCOPHENOLATE MOFETIL [Concomitant]
     Route: 065
  12. POTASSIUM BICARBONATE AND SODIUM BICARBONATE AND SODIUM PHOSPHATE, MON [Concomitant]
     Route: 065
  13. PREDNISOLONE [Concomitant]
     Route: 065
  14. ZOCOR [Suspect]
     Route: 048
     Dates: start: 20040106
  15. SULFAMETHOXAZOLE AND TRIMETHOPRIM [Concomitant]
     Route: 065

REACTIONS (4)
  - ASTHENIA [None]
  - CHROMATURIA [None]
  - MYOSITIS [None]
  - RHABDOMYOLYSIS [None]
